FAERS Safety Report 4981865-1 (Version None)
Quarter: 2006Q2

REPORT INFORMATION
  Report Type: 
  Country: None (occurrence: None)
  Receive Date: 20060425
  Receipt Date: 19991223
  Transmission Date: 20061013
  Serious: Yes (Other)
  Sender: FDA-Public Use
  Company Number: AUS/99/01727/LEX

PATIENT
  Age: 42 Year
  Sex: Female

DRUGS (5)
  1. CLOZARIL [Suspect]
     Indication: SCHIZOPHRENIA
     Dosage: 12-600 MG DAILY
     Route: 048
     Dates: start: 19990204
  2. IMIPRAMINE [Concomitant]
     Route: 065
     Dates: start: 19990805
  3. RISPERIDONE [Concomitant]
     Dosage: 2 MG/DAY
  4. EFFEXOR [Concomitant]
     Dosage: 300 MG/DAY
  5. VALPROATE SODIUM [Concomitant]

REACTIONS (6)
  - B-CELL LYMPHOMA [None]
  - CONVULSION [None]
  - DIABETES MELLITUS [None]
  - HEPATOMEGALY [None]
  - LYMPHOCYTOSIS [None]
  - LYMPHOPROLIFERATIVE DISORDER [None]
